FAERS Safety Report 18122701 (Version 1)
Quarter: 2020Q3

REPORT INFORMATION
  Report Type: Spontaneous
  Country: AF (occurrence: AF)
  Receive Date: 20200806
  Receipt Date: 20200806
  Transmission Date: 20201103
  Serious: No
  Sender: FDA-Public Use
  Company Number: None

PATIENT
  Age: 44 Year
  Sex: Female
  Weight: 91 kg

DRUGS (1)
  1. OCREVUS [Suspect]
     Active Substance: OCRELIZUMAB
     Indication: MULTIPLE SCLEROSIS
     Dosage: ?          OTHER FREQUENCY:EVERY 14 DAYS;?
     Route: 041
     Dates: start: 20200713

REACTIONS (3)
  - Oropharyngeal discomfort [None]
  - Paraesthesia [None]
  - Infusion related reaction [None]

NARRATIVE: CASE EVENT DATE: 20200713
